FAERS Safety Report 17463960 (Version 3)
Quarter: 2020Q2

REPORT INFORMATION
  Report Type: Spontaneous
  Country: US (occurrence: US)
  Receive Date: 20200226
  Receipt Date: 20200423
  Transmission Date: 20200713
  Serious: No
  Sender: FDA-Public Use
  Company Number: US-LEXICON PHARMACEUTICALS, INC-20-1606-00141

PATIENT
  Age: 61 Year
  Sex: Male

DRUGS (7)
  1. OCTREOTIDE ACETATE. [Concomitant]
     Active Substance: OCTREOTIDE ACETATE
  2. XERMELO [Suspect]
     Active Substance: TELOTRISTAT ETHYL
     Indication: CARCINOID TUMOUR OF THE SMALL BOWEL
     Dates: start: 20191231
  3. LISINOPRIL. [Concomitant]
     Active Substance: LISINOPRIL
  4. CHOLESTYRAMINE RESIN [Concomitant]
     Active Substance: CHOLESTYRAMINE
  5. PREVALITE [Concomitant]
     Active Substance: CHOLESTYRAMINE
  6. SANDOSTATIN LAR DEPOT [Concomitant]
     Active Substance: OCTREOTIDE ACETATE
     Dosage: PAST FOUR YEARS
  7. EZETIMIBE. [Concomitant]
     Active Substance: EZETIMIBE

REACTIONS (3)
  - Drug ineffective [Not Recovered/Not Resolved]
  - Abdominal pain [Unknown]
  - Serum serotonin increased [Unknown]
